FAERS Safety Report 20166259 (Version 1)
Quarter: 2021Q4

REPORT INFORMATION
  Report Type: Spontaneous
  Country: US (occurrence: None)
  Receive Date: 20211208
  Receipt Date: 20211208
  Transmission Date: 20220303
  Serious: Yes (Other)
  Sender: FDA-Public Use
  Company Number: None

PATIENT
  Age: 34 Year
  Sex: Female
  Weight: 67.5 kg

DRUGS (3)
  1. SUMATRIPTAN [Suspect]
     Active Substance: SUMATRIPTAN
     Indication: Migraine
     Route: 048
  2. Tums (1250 mg chewable tablets) [Concomitant]
  3. Prenatal Vitamin with Iron and Folic Acid (27-0.8 mg) tablet po daily [Concomitant]

REACTIONS (3)
  - Maternal exposure during pregnancy [None]
  - Abortion spontaneous [None]
  - Foetal exposure during pregnancy [None]

NARRATIVE: CASE EVENT DATE: 20211207
